FAERS Safety Report 23759666 (Version 1)
Quarter: 2024Q2

REPORT INFORMATION
  Report Type: Spontaneous
  Country: CN (occurrence: None)
  Receive Date: 20240419
  Receipt Date: 20240419
  Transmission Date: 20240716
  Serious: Yes (Other)
  Sender: FDA-Public Use
  Company Number: CN-ROCHE-3541505

PATIENT
  Age: 62 Year
  Sex: Female
  Weight: 63 kg

DRUGS (1)
  1. HERCEPTIN [Suspect]
     Active Substance: TRASTUZUMAB
     Indication: Breast cancer
     Route: 041
     Dates: start: 20240311, end: 20240402

REACTIONS (2)
  - Drug-induced liver injury [Unknown]
  - Transaminases increased [Unknown]

NARRATIVE: CASE EVENT DATE: 20240401
